FAERS Safety Report 10235290 (Version 2)
Quarter: 2014Q2

REPORT INFORMATION
  Report Type: Spontaneous
  Country: US (occurrence: US)
  Receive Date: 20140613
  Receipt Date: 20140613
  Transmission Date: 20141212
  Serious: No
  Sender: FDA-Public Use
  Company Number: US-PFIZER INC-2014132211

PATIENT
  Sex: Male

DRUGS (2)
  1. LYRICA [Suspect]
     Indication: PAIN
     Dosage: 150 MG, 2X/DAY
  2. LYRICA [Suspect]
     Dosage: 300 MG, 2X/DAY

REACTIONS (14)
  - Peripheral swelling [Unknown]
  - Arthralgia [Unknown]
  - Affect lability [Unknown]
  - Pain in extremity [Not Recovered/Not Resolved]
  - Withdrawal syndrome [Unknown]
  - Hyperhidrosis [Unknown]
  - Chills [Unknown]
  - Nausea [Unknown]
  - Diarrhoea [Unknown]
  - Weight decreased [Unknown]
  - Irritability [Unknown]
  - Malaise [Unknown]
  - Dizziness [Unknown]
  - Feeling abnormal [Unknown]
